FAERS Safety Report 9596936 (Version 2)
Quarter: 2013Q4

REPORT INFORMATION
  Report Type: Report from Study
  Country: US (occurrence: US)
  Receive Date: 20131004
  Receipt Date: 20131004
  Transmission Date: 20140711
  Serious: Yes (Hospitalization)
  Sender: FDA-Public Use
  Company Number: US-TAKEDA-TPA2013A06325

PATIENT
  Age: 75 Year
  Sex: Male
  Weight: 99.3 kg

DRUGS (18)
  1. BLINDED ALLOPURINOL [Suspect]
     Indication: HYPERURICAEMIA
     Dosage: UNK, QD
     Route: 048
     Dates: start: 20101214, end: 20130127
  2. BLINDED FEBUXOSTAT [Suspect]
     Indication: HYPERURICAEMIA
     Dosage: UNK, QD
     Route: 048
     Dates: start: 20101214, end: 20130127
  3. BLINDED ALLOPURINOL [Suspect]
     Dosage: UNK, QD
     Route: 048
     Dates: start: 20130630
  4. BLINDED FEBUXOSTAT [Suspect]
     Dosage: UNK, QD
     Route: 048
     Dates: start: 20130630
  5. METOPROLOL [Concomitant]
     Indication: HYPERTENSION
     Dosage: 25 MG, QD
     Route: 048
     Dates: start: 20101006, end: 20130627
  6. LISINOPRIL [Concomitant]
     Indication: HYPERTENSION
     Dosage: 20 MG, QD
     Route: 048
     Dates: start: 20101006
  7. ASPIRIN [Concomitant]
     Indication: CARDIAC DISORDER
     Dosage: 81 MG, QD
     Route: 048
     Dates: start: 1994
  8. ALBUTEROL [Concomitant]
     Indication: ASTHMA
     Dosage: 90 ?G, PRN
     Route: 050
     Dates: start: 2004
  9. ALBUTEROL [Concomitant]
     Indication: CHRONIC OBSTRUCTIVE PULMONARY DISEASE
     Dosage: 90 ?G, AS NEEDED
     Route: 050
     Dates: start: 20120312
  10. TYLENOL ARTHRITIS [Concomitant]
     Indication: ARTHRITIS
     Dosage: 650 MG, PRN
     Route: 048
     Dates: start: 2004
  11. NYQUIL [Concomitant]
     Indication: PAIN
     Dosage: 2 TABLE SPOONS, PRN
     Route: 048
     Dates: start: 1974
  12. NYQUIL [Concomitant]
     Indication: PYREXIA
  13. COMBIVENT [Concomitant]
     Indication: ASTHMA
     Dosage: 103-18 MCG, PRN
     Route: 050
     Dates: start: 1996
  14. IBUPROFEN [Concomitant]
     Indication: GOUT
     Dosage: 200 MG, PRN
     Route: 048
     Dates: start: 20110607
  15. HYDROCODONE/ACETAMINOPHEN (LORTAB) [Concomitant]
     Indication: GOUT
     Dosage: 5/325 MG, PRN
     Route: 048
     Dates: start: 20110607
  16. AVASTIN [Concomitant]
     Indication: AGE-RELATED MACULAR DEGENERATION
     Dosage: UNK, MONTHLY
     Route: 031
     Dates: start: 201212
  17. NEOSPORIN                          /00038301/ [Concomitant]
     Indication: DECUBITUS ULCER
     Dosage: 1 APPLICATION, QD
     Route: 061
     Dates: start: 201304, end: 201305
  18. OMEPRAZOLE [Concomitant]
     Indication: GASTROOESOPHAGEAL REFLUX DISEASE
     Dosage: 20 MG, PRN
     Route: 048
     Dates: start: 20130502

REACTIONS (1)
  - Chronic obstructive pulmonary disease [Recovered/Resolved]
